FAERS Safety Report 21602033 (Version 1)
Quarter: 2022Q4

REPORT INFORMATION
  Report Type: Spontaneous
  Country: IE (occurrence: IE)
  Receive Date: 20221116
  Receipt Date: 20221116
  Transmission Date: 20230112
  Serious: Yes (Other)
  Sender: FDA-Public Use
  Company Number: None

PATIENT
  Age: 74 Year
  Sex: Female

DRUGS (2)
  1. ATORVASTATIN [Suspect]
     Active Substance: ATORVASTATIN
     Indication: Blood cholesterol increased
     Dates: start: 20220715, end: 20220812
  2. HYDROCHLOROTHIAZIDE\OLMESARTAN MEDOXOMIL [Concomitant]
     Active Substance: HYDROCHLOROTHIAZIDE\OLMESARTAN MEDOXOMIL
     Dosage: ONE DAILY?OLMESARTAN STRENGTH: 20 MG?HYDROCHLOROTHIAZIDE STRENGTH: 12.5 MG
     Dates: start: 20160501, end: 20220801

REACTIONS (4)
  - Eye pain [Recovering/Resolving]
  - Myalgia [Recovering/Resolving]
  - Pruritus [Recovering/Resolving]
  - Irritability [Recovering/Resolving]

NARRATIVE: CASE EVENT DATE: 20220701
